FAERS Safety Report 5454130-6 (Version None)
Quarter: 2007Q3

REPORT INFORMATION
  Report Type: 
  Country: None (occurrence: None)
  Receive Date: 20070917
  Receipt Date: 20070905
  Transmission Date: 20080115
  Serious: Yes (Other)
  Sender: FDA-Public Use
  Company Number: US-ROCHE-513175

PATIENT
  Sex: Female

DRUGS (5)
  1. SAQUINAVIR [Suspect]
     Indication: DRUG USE FOR UNKNOWN INDICATION
  2. 3TC [Suspect]
     Indication: DRUG USE FOR UNKNOWN INDICATION
  3. RITONAVIR [Suspect]
     Indication: DRUG USE FOR UNKNOWN INDICATION
  4. AZT [Suspect]
     Indication: DRUG USE FOR UNKNOWN INDICATION
  5. GLUCOCORTICOID NOS [Concomitant]

REACTIONS (1)
  - DYSTROPHIA MYOTONICA [None]
